FAERS Safety Report 7422094-1 (Version None)
Quarter: 2011Q2

REPORT INFORMATION
  Report Type: 
  Country: None (occurrence: None)
  Receive Date: 20110418
  Receipt Date: 20110408
  Transmission Date: 20111010
  Serious: Yes (Death, Hospitalization)
  Sender: FDA-Public Use
  Company Number: TR-MERCK-1104TUR00001

PATIENT
  Age: 13 Year
  Sex: Male

DRUGS (2)
  1. VORICONAZOLE [Concomitant]
     Indication: BRONCHOPULMONARY ASPERGILLOSIS
     Route: 041
  2. CANCIDAS [Suspect]
     Indication: BRONCHOPULMONARY ASPERGILLOSIS
     Route: 041

REACTIONS (3)
  - DRUG INEFFECTIVE [None]
  - DEATH [None]
  - ZYGOMYCOSIS [None]
